FAERS Safety Report 22353798 (Version 1)
Quarter: 2023Q2

REPORT INFORMATION
  Report Type: Spontaneous
  Country: CO (occurrence: CO)
  Receive Date: 20230523
  Receipt Date: 20230523
  Transmission Date: 20230722
  Serious: Yes (Death)
  Sender: FDA-Public Use
  Company Number: CO-BAXTER-2023BAX021609

PATIENT
  Age: 52 Year
  Sex: Male
  Weight: 71 kg

DRUGS (8)
  1. DIANEAL PD-2 WITH DEXTROSE [Suspect]
     Active Substance: CALCIUM CHLORIDE\DEXTROSE\MAGNESIUM CHLORIDE\SODIUM CHLORIDE\SODIUM LACTATE
     Indication: Peritoneal dialysis
     Dosage: 12 LITRES, LAST INFUSION TO DRAIN AT 5 HOURS
     Route: 033
     Dates: start: 20180717, end: 20230504
  2. WARFARIN [Concomitant]
     Active Substance: WARFARIN
     Dosage: 5 MG ONCE A DAY
     Route: 065
  3. AMLODIPINE [Concomitant]
     Active Substance: AMLODIPINE BESYLATE
     Dosage: 5 MG 2 TIMES A DAY
     Route: 065
  4. OMEPRAZOLE [Concomitant]
     Active Substance: OMEPRAZOLE
     Dosage: 20 MG ONCE A DAY
     Route: 065
  5. ERYTHROPOIETIN [Concomitant]
     Active Substance: ERYTHROPOIETIN
     Dosage: 8000 IU PER WEEK
     Route: 058
  6. CALCITRIOL [Concomitant]
     Active Substance: CALCITRIOL
     Dosage: 0.25 MCG ONCE A DAY
     Route: 065
  7. CALCIUM CARBONATE [Concomitant]
     Active Substance: CALCIUM CARBONATE
     Dosage: ONCE A DAY
     Route: 065
  8. ACETAMINOPHEN [Concomitant]
     Active Substance: ACETAMINOPHEN
     Dosage: 500 MG 2 TIMES A DAY
     Route: 065

REACTIONS (1)
  - Disease complication [Fatal]
